FAERS Safety Report 20639405 (Version 1)
Quarter: 2022Q1

REPORT INFORMATION
  Report Type: Spontaneous
  Country: US (occurrence: US)
  Receive Date: 20220326
  Receipt Date: 20220326
  Transmission Date: 20220423
  Serious: Yes (Other)
  Sender: FDA-Public Use
  Company Number: US-Shilpa Medicare Limited-SML-US-2022-00256

PATIENT
  Age: 23 Year
  Sex: Female

DRUGS (2)
  1. DOCETAXEL [Suspect]
     Active Substance: DOCETAXEL
     Indication: Osteosarcoma
  2. GEMCITABINE [Suspect]
     Active Substance: GEMCITABINE
     Indication: Osteosarcoma
     Dosage: ON DAYS 1 AND 8 OF 21 DAY CYCLE

REACTIONS (4)
  - Dacryostenosis acquired [Unknown]
  - Madarosis [Unknown]
  - Capillary leak syndrome [Unknown]
  - Oedema [Unknown]
